FAERS Safety Report 7413802-4 (Version None)
Quarter: 2011Q2

REPORT INFORMATION
  Report Type: 
  Country: None (occurrence: None)
  Receive Date: 20110413
  Receipt Date: 20110406
  Transmission Date: 20111010
  Serious: Yes (Hospitalization, Disabling, Other)
  Sender: FDA-Public Use
  Company Number: US-MERCK-0802USA02119

PATIENT
  Age: 57 Year
  Sex: Female
  Weight: 49 kg

DRUGS (6)
  1. FOSAMAX [Suspect]
     Indication: OSTEOPOROSIS
     Route: 048
     Dates: start: 20050720, end: 20071203
  2. ACTONEL [Suspect]
     Route: 048
     Dates: start: 20021009, end: 20050701
  3. FOSAMAX [Suspect]
     Indication: OSTEOPENIA
     Route: 048
     Dates: start: 20050720, end: 20071203
  4. FOSAMAX [Suspect]
     Route: 048
     Dates: start: 20010101, end: 20020801
  5. SYNTHROID [Concomitant]
     Route: 065
     Dates: start: 19700101
  6. FOSAMAX [Suspect]
     Route: 048
     Dates: start: 20010101, end: 20020801

REACTIONS (63)
  - OSTEONECROSIS OF JAW [None]
  - DEPRESSION [None]
  - EXCORIATION [None]
  - EMPHYSEMA [None]
  - DENTAL CARIES [None]
  - FAECES DISCOLOURED [None]
  - SKIN LESION [None]
  - IMPAIRED HEALING [None]
  - HISTOPLASMOSIS [None]
  - ABDOMINAL PAIN [None]
  - ADVERSE DRUG REACTION [None]
  - DUODENITIS [None]
  - WRIST FRACTURE [None]
  - LABYRINTHITIS [None]
  - INFLAMMATION [None]
  - HYPERCHOLESTEROLAEMIA [None]
  - BURSITIS [None]
  - NEPHROLITHIASIS [None]
  - COLITIS ULCERATIVE [None]
  - IRON DEFICIENCY ANAEMIA [None]
  - OSTEOPOROSIS [None]
  - CONTUSION [None]
  - FALL [None]
  - DRY EYE [None]
  - TOOTH ABSCESS [None]
  - PAIN [None]
  - ARTERIOSCLEROSIS [None]
  - INJURY [None]
  - HEADACHE [None]
  - ORAL TORUS [None]
  - TOOTH FRACTURE [None]
  - MUSCULOSKELETAL CHEST PAIN [None]
  - BONE DENSITY DECREASED [None]
  - OSTEOARTHRITIS [None]
  - PELVIC MASS [None]
  - ANAEMIA [None]
  - OROPHARYNGEAL PAIN [None]
  - INFLAMMATORY BOWEL DISEASE [None]
  - GINGIVAL ULCERATION [None]
  - RADIUS FRACTURE [None]
  - OSTEOMYELITIS [None]
  - OVERDOSE [None]
  - SPLENIC CALCIFICATION [None]
  - SENSITIVITY OF TEETH [None]
  - LYMPHADENOPATHY [None]
  - POST-TRAUMATIC STRESS DISORDER [None]
  - ABSCESS [None]
  - ASPARTATE AMINOTRANSFERASE INCREASED [None]
  - PSORIASIS [None]
  - VULVOVAGINAL DRYNESS [None]
  - SENSATION OF FOREIGN BODY [None]
  - JAW CYST [None]
  - GASTRITIS [None]
  - CAROTID BRUIT [None]
  - DEAFNESS [None]
  - DIARRHOEA [None]
  - DYSPHAGIA [None]
  - TOOTH DISORDER [None]
  - TENDONITIS [None]
  - BACK PAIN [None]
  - GINGIVITIS [None]
  - GASTROOESOPHAGEAL REFLUX DISEASE [None]
  - BONE DISORDER [None]
